FAERS Safety Report 8869672 (Version 1)
Quarter: 2012Q4

REPORT INFORMATION
  Report Type: Report from Study
  Country: CA (occurrence: CA)
  Receive Date: 20121028
  Receipt Date: 20121028
  Transmission Date: 20130627
  Serious: Yes (Other)
  Sender: FDA-Public Use
  Company Number: CA-JNJFOC-20121009444

PATIENT
  Age: 51 Year
  Sex: Female
  Weight: 75 kg

DRUGS (5)
  1. REMICADE [Suspect]
     Indication: RHEUMATOID ARTHRITIS
     Route: 042
     Dates: start: 20120712, end: 20120726
  2. SULFASALAZINE [Concomitant]
     Route: 065
  3. METHOTREXATE [Concomitant]
     Route: 065
  4. LEFLUNOMIDE [Concomitant]
     Route: 065
  5. HUMIRA [Concomitant]
     Route: 065

REACTIONS (1)
  - Pulmonary thrombosis [Not Recovered/Not Resolved]
